FAERS Safety Report 7154167-5 (Version None)
Quarter: 2010Q4

REPORT INFORMATION
  Report Type: 
  Country: None (occurrence: None)
  Receive Date: 20101213
  Receipt Date: 20101208
  Transmission Date: 20110411
  Serious: Yes (Hospitalization, Other)
  Sender: FDA-Public Use
  Company Number: JP-PFIZER INC-2010079815

PATIENT
  Age: 77 Year
  Sex: Male
  Weight: 66.4 kg

DRUGS (17)
  1. DIFLUCAN [Suspect]
     Indication: FUNGAL INFECTION
     Dosage: 300 MG, 1X/DAY
     Route: 048
     Dates: start: 20100524, end: 20100622
  2. HOKUNALIN [Concomitant]
     Indication: BRONCHITIS CHRONIC
     Dosage: 2 MG, 1X/DAY
     Route: 062
     Dates: start: 20100412, end: 20100622
  3. AMLODIPINE [Concomitant]
     Indication: HYPERTENSION
     Dosage: 2.5 MG, 1X/DAY
     Route: 048
     Dates: start: 20100412, end: 20100622
  4. TEPRENONE [Concomitant]
     Route: 048
  5. LASIX [Concomitant]
     Indication: OEDEMA DUE TO CARDIAC DISEASE
     Dosage: 20 MG, 2X/DAY
     Route: 048
     Dates: start: 20100412, end: 20100622
  6. TORASEMIDE [Concomitant]
     Indication: OEDEMA DUE TO CARDIAC DISEASE
     Dosage: 4 MG, 1X/DAY
     Route: 048
     Dates: start: 20100513, end: 20100622
  7. LOPRESSOR [Concomitant]
     Indication: ESSENTIAL HYPERTENSION
     Dosage: 20 MG, 3X/DAY
     Route: 048
     Dates: end: 20100622
  8. ASPIRIN [Concomitant]
     Indication: THROMBOSIS PROPHYLAXIS
     Dosage: 100 MG, 2X/DAY
     Route: 048
     Dates: end: 20100622
  9. LOXOPROFEN [Concomitant]
     Indication: ANTIINFLAMMATORY THERAPY
     Dosage: 60 MG, 2X/DAY
     Route: 048
     Dates: start: 20100427, end: 20100605
  10. LIPITOR [Concomitant]
     Indication: HYPERCHOLESTEROLAEMIA
     Dosage: 5 MG, 1X/DAY
     Route: 048
     Dates: end: 20100622
  11. LANSOPRAZOLE [Concomitant]
     Indication: GASTRIC ULCER
     Dosage: 30 MG, 1X/DAY
     Route: 048
     Dates: start: 20100412, end: 20100622
  12. NITROGLYCERIN [Concomitant]
     Indication: ANGINA PECTORIS
     Dosage: 27 MG, 1X/DAY
     Route: 062
     Dates: start: 20100412, end: 20100622
  13. SPIRONOLACTONE [Concomitant]
     Indication: OEDEMA DUE TO CARDIAC DISEASE
     Dosage: 25 MG, 2X/DAY
     Route: 048
     Dates: start: 20100412, end: 20100524
  14. MAG-LAX [Concomitant]
     Indication: CONSTIPATION
     Dosage: 330 MG, 3X/DAY
     Route: 048
     Dates: start: 20100503, end: 20100622
  15. HUMULIN R [Concomitant]
     Indication: DIABETES MELLITUS
     Dosage: UNK
     Route: 058
     Dates: start: 20100421, end: 20100601
  16. INSULIN DETEMIR [Concomitant]
     Indication: DIABETES MELLITUS
     Dosage: UNK
     Route: 058
     Dates: start: 20100420, end: 20100622
  17. WARFARIN [Concomitant]
     Indication: THROMBOSIS PROPHYLAXIS
     Dosage: UNK
     Route: 048
     Dates: start: 20100412, end: 20100603

REACTIONS (4)
  - DIARRHOEA [None]
  - DRUG ERUPTION [None]
  - PSEUDOMEMBRANOUS COLITIS [None]
  - TOXIC EPIDERMAL NECROLYSIS [None]
